FAERS Safety Report 12886280 (Version 3)
Quarter: 2017Q2

REPORT INFORMATION
  Report Type: Spontaneous
  Country: US (occurrence: US)
  Receive Date: 20161026
  Receipt Date: 20170613
  Transmission Date: 20170830
  Serious: No
  Sender: FDA-Public Use
  Company Number: US-BAYER-2016-205469

PATIENT
  Age: 58 Year
  Sex: Male

DRUGS (1)
  1. STIVARGA [Suspect]
     Active Substance: REGORAFENIB
     Indication: GASTROINTESTINAL STROMAL TUMOUR
     Dosage: DAILY DOSE 160 MG
     Route: 048
     Dates: start: 20160802, end: 20170424

REACTIONS (6)
  - Dry skin [None]
  - Hyperkeratosis [None]
  - Loss of personal independence in daily activities [None]
  - Pain [None]
  - Pain in extremity [None]
  - Palmar-plantar erythrodysaesthesia syndrome [Not Recovered/Not Resolved]

NARRATIVE: CASE EVENT DATE: 20170424
